FAERS Safety Report 7417693-7 (Version None)
Quarter: 2011Q2

REPORT INFORMATION
  Report Type: 
  Country: None (occurrence: None)
  Receive Date: 20110415
  Receipt Date: 20110412
  Transmission Date: 20111010
  Serious: Yes (Death, Hospitalization)
  Sender: FDA-Public Use
  Company Number: RU-PFIZER INC-2011079838

PATIENT
  Sex: Female

DRUGS (7)
  1. LYRICA [Suspect]
     Indication: BACK PAIN
     Dosage: 75 MG, 2X/DAY
     Route: 048
     Dates: start: 20110407
  2. LYRICA [Suspect]
     Indication: MUSCULOSKELETAL CHEST PAIN
  3. AMITRIPTYLINE [Concomitant]
     Indication: MUSCULOSKELETAL CHEST PAIN
  4. LYRICA [Suspect]
     Indication: BONE PAIN
  5. AMITRIPTYLINE [Concomitant]
     Indication: BACK PAIN
     Dosage: 25MG DIVIDED INTO 3 PARTS: 1/4 IN THE MORNING, 1/4 IN THE AFTERNOON, 1/2 IN THE EVENIN
     Route: 048
     Dates: start: 20110407
  6. AMITRIPTYLINE [Concomitant]
     Indication: BONE PAIN
  7. ENAP [Concomitant]
     Indication: HYPERTENSION
     Dosage: 10 MG, 1X/DAY
     Route: 048

REACTIONS (2)
  - HAEMORRHAGIC STROKE [None]
  - FEELING ABNORMAL [None]
